FAERS Safety Report 6872459-1 (Version None)
Quarter: 2010Q3

REPORT INFORMATION
  Report Type: 
  Country: None (occurrence: None)
  Receive Date: 20100723
  Receipt Date: 20081003
  Transmission Date: 20110219
  Serious: No
  Sender: FDA-Public Use
  Company Number: US-PFIZER INC-2008083980

PATIENT
  Sex: Female
  Weight: 59.87 kg

DRUGS (7)
  1. CHANTIX [Suspect]
     Indication: SMOKING CESSATION THERAPY
     Route: 048
     Dates: start: 20080920
  2. VALIUM [Concomitant]
  3. FLEXERIL [Concomitant]
  4. PERCOCET [Concomitant]
  5. METHOTREXATE [Concomitant]
  6. PREDNISONE [Concomitant]
  7. OXYGEN [Concomitant]

REACTIONS (5)
  - CONSTIPATION [None]
  - DYSPNOEA [None]
  - FEELING ABNORMAL [None]
  - FLATULENCE [None]
  - WEIGHT INCREASED [None]
